FAERS Safety Report 22282393 (Version 2)
Quarter: 2023Q2

REPORT INFORMATION
  Report Type: Report from Study
  Country: US (occurrence: US)
  Receive Date: 20230504
  Receipt Date: 20230511
  Transmission Date: 20230722
  Serious: Yes (Hospitalization, Other)
  Sender: FDA-Public Use
  Company Number: US-GILEAD-2023-0626591

PATIENT
  Age: 69 Year
  Sex: Male

DRUGS (5)
  1. REMDESIVIR [Suspect]
     Active Substance: REMDESIVIR
     Indication: COVID-19
     Dosage: 1100 MG
     Route: 042
     Dates: start: 20230324, end: 20230402
  2. REMDESIVIR [Suspect]
     Active Substance: REMDESIVIR
     Dosage: 1100 MG
     Route: 042
     Dates: start: 20230405, end: 20230409
  3. REMDESIVIR [Suspect]
     Active Substance: REMDESIVIR
     Dosage: 1100 MG
     Route: 042
     Dates: start: 20230418, end: 20230427
  4. PAXLOVID [Concomitant]
     Active Substance: NIRMATRELVIR\RITONAVIR
  5. FLUVOXAMINE [Concomitant]
     Active Substance: FLUVOXAMINE

REACTIONS (3)
  - Rheumatoid arthritis [Not Recovered/Not Resolved]
  - SARS-CoV-2 test positive [Not Recovered/Not Resolved]
  - Immunosuppression [Not Recovered/Not Resolved]

NARRATIVE: CASE EVENT DATE: 20230428
